FAERS Safety Report 6430223-1 (Version None)
Quarter: 2009Q4

REPORT INFORMATION
  Report Type: 
  Country: None (occurrence: None)
  Receive Date: 20091106
  Receipt Date: 20091027
  Transmission Date: 20100525
  Serious: Yes (Other)
  Sender: FDA-Public Use
  Company Number: US-AVENTIS-200919548US

PATIENT
  Sex: Male
  Weight: 72.48 kg

DRUGS (7)
  1. LANTUS [Suspect]
     Route: 058
     Dates: start: 20020101, end: 20070101
  2. SIMVASTATIN [Concomitant]
     Route: 048
  3. AMLODIPINE [Concomitant]
  4. NITROGLYCERIN SPRAY [Concomitant]
     Dosage: DOSE: UNK
  5. ISOSORBIDE [Concomitant]
  6. UNKNOWN DRUG [Concomitant]
     Dosage: DOSE: UNK
  7. OXYGEN [Concomitant]
     Dosage: FREQUENCY: CONTINUOUS
     Route: 055
     Dates: start: 20030101

REACTIONS (10)
  - BLOOD GLUCOSE DECREASED [None]
  - CARDIAC FAILURE CONGESTIVE [None]
  - CHEST PAIN [None]
  - CHRONIC OBSTRUCTIVE PULMONARY DISEASE [None]
  - DYSPNOEA [None]
  - FATIGUE [None]
  - MYOCARDIAL INFARCTION [None]
  - PALPITATIONS [None]
  - VISUAL IMPAIRMENT [None]
  - WEIGHT INCREASED [None]
